FAERS Safety Report 23084462 (Version 1)
Quarter: 2023Q4

REPORT INFORMATION
  Report Type: Spontaneous
  Country: US (occurrence: None)
  Receive Date: 20231018
  Receipt Date: 20231018
  Transmission Date: 20240110
  Serious: Yes (Hospitalization)
  Sender: FDA-Public Use
  Company Number: None

PATIENT
  Age: 25 Year
  Sex: Female
  Weight: 66 kg

DRUGS (1)
  1. WARFARIN SODIUM [Suspect]
     Active Substance: WARFARIN SODIUM
     Dates: start: 20210401

REACTIONS (8)
  - Abdominal pain upper [None]
  - Anticoagulation drug level above therapeutic [None]
  - Anaemia [None]
  - Haemoptysis [None]
  - Therapy interrupted [None]
  - Pulmonary alveolar haemorrhage [None]
  - Gastrointestinal haemorrhage [None]
  - Red blood cell transfusion [None]

NARRATIVE: CASE EVENT DATE: 20221017
